FAERS Safety Report 6634322-0 (Version None)
Quarter: 2010Q1

REPORT INFORMATION
  Report Type: 
  Country: None (occurrence: None)
  Receive Date: 20100312
  Receipt Date: 20100312
  Transmission Date: 20100710
  Serious: Yes (Other)
  Sender: FDA-Public Use
  Company Number: None

PATIENT
  Sex: Female
  Weight: 31.7518 kg

DRUGS (2)
  1. POLYETHYLENE GLYCOL [Suspect]
     Indication: ENEMA ADMINISTRATION
     Dosage: 17 GMS DAILY ANTEGRADE ENEMA
     Dates: start: 20091101
  2. HYPERTONIC SALINE [Concomitant]

REACTIONS (2)
  - CONDITION AGGRAVATED [None]
  - CONVULSION [None]
